FAERS Safety Report 6434883-0 (Version None)
Quarter: 2009Q4

REPORT INFORMATION
  Report Type: 
  Country: None (occurrence: None)
  Receive Date: 20091109
  Receipt Date: 20091109
  Transmission Date: 20100525
  Serious: Yes (Other)
  Sender: FDA-Public Use
  Company Number: None

PATIENT
  Age: 67 Year
  Sex: Female
  Weight: 66.2252 kg

DRUGS (1)
  1. ASACOL [Suspect]
     Indication: COLITIS
     Dosage: 400 MG 3 TIMES DAILY PO
     Route: 048
     Dates: start: 20090807, end: 20090826

REACTIONS (5)
  - ARTHRALGIA [None]
  - INFLUENZA LIKE ILLNESS [None]
  - MALAISE [None]
  - PAIN [None]
  - PYREXIA [None]
